FAERS Safety Report 5266985-9 (Version None)
Quarter: 2007Q1

REPORT INFORMATION
  Report Type: 
  Country: None (occurrence: None)
  Receive Date: 20070316
  Receipt Date: 20070312
  Transmission Date: 20070707
  Serious: Yes (Hospitalization)
  Sender: FDA-Public Use
  Company Number: BR-BRISTOL-MYERS SQUIBB COMPANY-13707518

PATIENT
  Age: 60 Year
  Sex: Female
  Weight: 60 kg

DRUGS (5)
  1. HYDREA [Suspect]
     Indication: PLATELET COUNT INCREASED
     Route: 048
     Dates: start: 20040101
  2. PURAN T4 [Concomitant]
     Indication: HYPOTHYROIDISM
     Route: 048
  3. METFORMIN HCL [Concomitant]
     Indication: DIABETES MELLITUS
  4. AAS [Concomitant]
     Route: 048
     Dates: end: 20050101
  5. PENTOXIFYLLINE [Concomitant]

REACTIONS (6)
  - ANAPHYLACTIC SHOCK [None]
  - DIZZINESS [None]
  - MALAISE [None]
  - NAUSEA [None]
  - PRURITUS [None]
  - URTICARIA [None]
